FAERS Safety Report 7075053-5 (Version None)
Quarter: 2010Q4

REPORT INFORMATION
  Report Type: 
  Country: None (occurrence: None)
  Receive Date: 20101029
  Receipt Date: 20101012
  Transmission Date: 20110411
  Serious: No
  Sender: FDA-Public Use
  Company Number: US-WYE-H12002809

PATIENT
  Sex: Male

DRUGS (9)
  1. PRISTIQ [Suspect]
     Indication: ANXIETY
     Route: 048
     Dates: start: 20081101
  2. PRISTIQ [Suspect]
     Indication: DEPRESSION
  3. MAGNESIUM CITRATE [Concomitant]
  4. ATIVAN [Concomitant]
  5. KLONOPIN [Concomitant]
  6. LUNESTA [Suspect]
     Route: 048
     Dates: start: 20100601, end: 20100601
  7. LUNESTA [Suspect]
     Route: 048
     Dates: start: 20100601
  8. DEPAKOTE [Concomitant]
  9. MELATONIN [Concomitant]

REACTIONS (9)
  - AGITATION [None]
  - AKATHISIA [None]
  - ANXIETY [None]
  - CONDITION AGGRAVATED [None]
  - DRUG INEFFECTIVE [None]
  - ENERGY INCREASED [None]
  - INSOMNIA [None]
  - RESTLESSNESS [None]
  - SOMNOLENCE [None]
